FAERS Safety Report 9862685 (Version 1)
Quarter: 2014Q1

REPORT INFORMATION
  Report Type: Spontaneous
  Country: US (occurrence: US)
  Receive Date: 20140203
  Receipt Date: 20140203
  Transmission Date: 20141002
  Serious: Yes (Other)
  Sender: FDA-Public Use
  Company Number: ALCN2014US000820

PATIENT
  Age: 77 Year
  Sex: Female

DRUGS (2)
  1. TRAVATAN [Suspect]
     Indication: OPEN ANGLE GLAUCOMA
     Dosage: 1 UNK, BID
     Route: 047
     Dates: start: 2012
  2. AZOPT [Suspect]
     Indication: OPEN ANGLE GLAUCOMA
     Dosage: UNK UNK, BID
     Route: 047
     Dates: start: 2013

REACTIONS (1)
  - Eye haemangioma [Recovered/Resolved]
